FAERS Safety Report 13774209 (Version 1)
Quarter: 2017Q3

REPORT INFORMATION
  Report Type: Spontaneous
  Country: US (occurrence: US)
  Receive Date: 20170720
  Receipt Date: 20170720
  Transmission Date: 20171127
  Serious: Yes (Life-Threatening, Other)
  Sender: FDA-Public Use
  Company Number: None

PATIENT
  Age: 63 Year
  Sex: Male
  Weight: 111.13 kg

DRUGS (2)
  1. NADOLOL, 20MG GREENSTONE [Suspect]
     Active Substance: NADOLOL
     Indication: CHEST PAIN
     Route: 048
     Dates: start: 20170712, end: 20170719
  2. NADOLOL, 20MG GREENSTONE [Suspect]
     Active Substance: NADOLOL
     Indication: VENTRICULAR EXTRASYSTOLES
     Route: 048
     Dates: start: 20170712, end: 20170719

REACTIONS (8)
  - Paraesthesia [None]
  - Hypertension [None]
  - Head discomfort [None]
  - Nervousness [None]
  - Flushing [None]
  - Balance disorder [None]
  - Gait disturbance [None]
  - Eye irritation [None]

NARRATIVE: CASE EVENT DATE: 20170715
